FAERS Safety Report 8669391 (Version 2)
Quarter: 2013Q4

REPORT INFORMATION
  Report Type: Report from Study
  Country: JP (occurrence: JP)
  Receive Date: 20120717
  Receipt Date: 20131108
  Transmission Date: 20140711
  Serious: Yes (Hospitalization)
  Sender: FDA-Public Use
  Company Number: JP-MSD-1207JPN001145

PATIENT
  Age: 61 Year
  Sex: Male
  Weight: 75 kg

DRUGS (17)
  1. RIBAVIRIN [Suspect]
     Indication: HEPATITIS C
     Dosage: 800 MG, QD
     Route: 048
     Dates: start: 20120316, end: 20120404
  2. RIBAVIRIN [Suspect]
     Dosage: 600 MG, QD
     Route: 048
     Dates: start: 20120409, end: 20120501
  3. RIBAVIRIN [Suspect]
     Dosage: 400 MG, QW
     Route: 048
     Dates: start: 20120501, end: 20120508
  4. RIBAVIRIN [Suspect]
     Dosage: 200 MG, QW
     Route: 048
     Dates: start: 20120508, end: 20120521
  5. RIBAVIRIN [Suspect]
     Dosage: 200 MG, QW
     Route: 048
     Dates: start: 20120601, end: 20120603
  6. PEGINTERFERON ALFA-2B [Suspect]
     Indication: HEPATITIS C
     Dosage: 100 MICROGRAM, QW
     Route: 058
     Dates: start: 20120316, end: 20120323
  7. PEGINTERFERON ALFA-2B [Suspect]
     Dosage: 80 MICROGRAM, QW
     Route: 058
     Dates: start: 20120330, end: 20120330
  8. PEGINTERFERON ALFA-2B [Suspect]
     Dosage: 80 MICROGRAM, QW
     Route: 058
     Dates: start: 20120409, end: 20120424
  9. PEGINTERFERON ALFA-2B [Suspect]
     Dosage: 40 MICROGRAM, QW
     Route: 058
     Dates: start: 20120501, end: 20120529
  10. TELAVIC [Suspect]
     Indication: HEPATITIS C
     Dosage: 2250 MG, QD
     Route: 048
     Dates: start: 20120316, end: 20120404
  11. TELAVIC [Suspect]
     Dosage: 1500 MG, QD
     Route: 048
     Dates: start: 20120411, end: 20120416
  12. TELAVIC [Suspect]
     Dosage: 2250 MG, QD
     Route: 048
     Dates: start: 20120416, end: 20120528
  13. TELAVIC [Suspect]
     Dosage: 1500 MG, QD
     Route: 048
     Dates: start: 20120529, end: 20120604
  14. PNEUMOVAX [Suspect]
     Route: 051
  15. LONGES [Concomitant]
     Indication: HYPERTENSION
     Dosage: 10 MG, QD
     Route: 048
     Dates: end: 20120507
  16. AMLODIPINE [Concomitant]
     Indication: HYPERTENSION
     Dosage: 5 MG, QD
     Route: 048
     Dates: start: 20120508, end: 20120605
  17. AMLODIPINE [Concomitant]
     Dosage: 2.5 MG, UNK
     Route: 048
     Dates: start: 20120606

REACTIONS (2)
  - Haemoglobin decreased [Not Recovered/Not Resolved]
  - Erythema [Recovered/Resolved]
